FAERS Safety Report 9321499 (Version 1)
Quarter: 2013Q2

REPORT INFORMATION
  Report Type: Spontaneous
  Country: US (occurrence: US)
  Receive Date: 20130531
  Receipt Date: 20130531
  Transmission Date: 20140414
  Serious: No
  Sender: FDA-Public Use
  Company Number: US-FOUGERA-2013FO000002

PATIENT
  Sex: Female
  Weight: 10.44 kg

DRUGS (2)
  1. HYDROCORTISONE [Suspect]
     Indication: PRODUCT USED FOR UNKNOWN INDICATION
     Route: 061
  2. SALBUTAMOL [Concomitant]
     Indication: ASTHMA
     Dates: start: 2012

REACTIONS (1)
  - Accidental exposure to product by child [Recovered/Resolved]
